FAERS Safety Report 4407076-6 (Version None)
Quarter: 2004Q3

REPORT INFORMATION
  Report Type: 
  Country: None (occurrence: None)
  Receive Date: 20040723
  Receipt Date: 20040723
  Transmission Date: 20050211
  Serious: Yes (Hospitalization)
  Sender: FDA-Public Use
  Company Number: None

PATIENT
  Sex: Male
  Weight: 55.3388 kg

DRUGS (14)
  1. VELCADE [Suspect]
     Indication: MANTLE CELL LYMPHOMA
     Dosage: 1.6 MG IV
     Route: 042
     Dates: start: 20040611
  2. VELCADE [Suspect]
     Indication: MANTLE CELL LYMPHOMA
     Dosage: 1.6 MG IV
     Route: 042
     Dates: start: 20040614
  3. VELCADE [Suspect]
     Indication: MANTLE CELL LYMPHOMA
     Dosage: 1.6 MG IV
     Route: 042
     Dates: start: 20040706
  4. VELCADE [Suspect]
     Indication: MANTLE CELL LYMPHOMA
     Dosage: 1.6 MG IV
     Route: 042
     Dates: start: 20040709
  5. CYCLOPHOSPHAMIDE [Suspect]
     Indication: MANTLE CELL LYMPHOMA
     Dosage: 1223 MG IV
     Route: 042
     Dates: start: 20040624
  6. CYCLOPHOSPHAMIDE [Suspect]
     Indication: MANTLE CELL LYMPHOMA
     Dosage: 1223 MG IV
     Route: 042
     Dates: start: 20040706
  7. DOXORUBICIN HCL [Suspect]
     Indication: MANTLE CELL LYMPHOMA
     Dosage: 80 MG IV
     Route: 042
     Dates: start: 20040611
  8. DOXORUBICIN HCL [Suspect]
     Indication: MANTLE CELL LYMPHOMA
     Dosage: 80 MG IV
     Route: 042
     Dates: start: 20040706
  9. VINCRISTINE [Suspect]
     Indication: MANTLE CELL LYMPHOMA
     Dosage: 0.57 MG IV
     Route: 042
     Dates: start: 20040611
  10. VINCRISTINE [Suspect]
     Indication: MANTLE CELL LYMPHOMA
     Dosage: 0.57 MG IV
     Route: 042
     Dates: start: 20040706
  11. PREDNISONE [Suspect]
     Indication: MANTLE CELL LYMPHOMA
     Dosage: 100MG PO
     Route: 048
     Dates: start: 20040611, end: 20040615
  12. PREDNISONE [Suspect]
     Indication: MANTLE CELL LYMPHOMA
     Dosage: 100MG PO
     Route: 048
     Dates: start: 20040706, end: 20040710
  13. FLOMAX [Concomitant]
  14. LUMIGAN [Concomitant]

REACTIONS (1)
  - CHYLOTHORAX [None]
